FAERS Safety Report 10710756 (Version 1)
Quarter: 2015Q1

REPORT INFORMATION
  Report Type: Spontaneous
  Country: US (occurrence: US)
  Receive Date: 20150114
  Receipt Date: 20150114
  Transmission Date: 20150721
  Serious: Yes (Death)
  Sender: FDA-Public Use
  Company Number: US-PFIZER INC-2015007887

PATIENT
  Age: 33 Year
  Sex: Male

DRUGS (4)
  1. METHYLENE DIOXYAMPHETAMINE [Suspect]
     Active Substance: METHYLENEDIOXYMETHAMPHETAMINE
  2. HEROIN [Suspect]
     Active Substance: DIACETYLMORPHINE
  3. ALPRAZOLAM. [Suspect]
     Active Substance: ALPRAZOLAM
  4. COCAINE [Suspect]
     Active Substance: COCAINE

REACTIONS (1)
  - Drug abuse [Fatal]

NARRATIVE: CASE EVENT DATE: 2013
